FAERS Safety Report 9417717 (Version 1)
Quarter: 2013Q3

REPORT INFORMATION
  Report Type: Spontaneous
  Country: US (occurrence: None)
  Receive Date: 20130722
  Receipt Date: 20130722
  Transmission Date: 20140515
  Serious: Yes (Hospitalization)
  Sender: FDA-Public Use
  Company Number: None

PATIENT
  Age: 64 Year
  Sex: Female
  Weight: 89.4 kg

DRUGS (1)
  1. CETUXIMAB [Suspect]
     Dosage: RT 60 GY AND CETUXIMAB INTIAL DOSE 400 MG/M2 AND THEN 250 MG/M2/WEEK X 6 WEEKS THEN 250 MG/M2/WEEK

REACTIONS (5)
  - Pyrexia [None]
  - Myalgia [None]
  - Headache [None]
  - Hypotension [None]
  - Diarrhoea [None]
